FAERS Safety Report 7288822-3 (Version None)
Quarter: 2011Q1

REPORT INFORMATION
  Report Type: 
  Country: None (occurrence: None)
  Receive Date: 20110211
  Receipt Date: 20110203
  Transmission Date: 20110831
  Serious: Yes (Hospitalization)
  Sender: FDA-Public Use
  Company Number: JP-MERCK-1102USA00756

PATIENT
  Age: 43 Year
  Sex: Female

DRUGS (7)
  1. TAXOL [Suspect]
     Indication: OVARIAN CANCER
     Route: 042
     Dates: start: 20101201, end: 20101201
  2. EMEND [Suspect]
     Route: 048
     Dates: start: 20101202, end: 20101202
  3. EMEND [Suspect]
     Route: 048
     Dates: start: 20101203, end: 20101203
  4. EMEND [Suspect]
     Indication: PROPHYLAXIS OF NAUSEA AND VOMITING
     Route: 048
     Dates: start: 20101201, end: 20101201
  5. GRANISETRON [Concomitant]
     Route: 065
     Dates: start: 20101201, end: 20101201
  6. CARBOPLATIN [Suspect]
     Indication: OVARIAN CANCER
     Route: 042
     Dates: start: 20101201, end: 20101201
  7. DEXAMETHASONE [Concomitant]
     Route: 065
     Dates: start: 20101201, end: 20101203

REACTIONS (1)
  - ILEUS [None]
